FAERS Safety Report 10888792 (Version 2)
Quarter: 2015Q2

REPORT INFORMATION
  Report Type: Spontaneous
  Country: AU (occurrence: AU)
  Receive Date: 20150305
  Receipt Date: 20150511
  Transmission Date: 20150821
  Serious: Yes (Life-Threatening, Hospitalization, Other)
  Sender: FDA-Public Use
  Company Number: AU-ELI_LILLY_AND_COMPANY-AU201503001052

PATIENT
  Age: 82 Year
  Sex: Female
  Weight: 71.9 kg

DRUGS (15)
  1. MINAX [Suspect]
     Active Substance: METAMIZOLE
     Indication: PRODUCT USED FOR UNKNOWN INDICATION
     Route: 065
  2. MEGAFOL [Concomitant]
     Active Substance: FOLIC ACID
  3. DIABEX [Concomitant]
     Active Substance: METFORMIN HYDROCHLORIDE
     Dosage: 2 DF, EACH EVENING
  4. XALATAN [Concomitant]
     Active Substance: LATANOPROST
  5. TAMBOCOR [Suspect]
     Active Substance: FLECAINIDE ACETATE
     Indication: PRODUCT USED FOR UNKNOWN INDICATION
     Dosage: UNK
     Route: 065
     Dates: end: 201408
  6. LANTUS [Concomitant]
     Active Substance: INSULIN GLARGINE
     Dosage: UNK, EACH EVENING
  7. PREDNISONE. [Concomitant]
     Active Substance: PREDNISONE
     Dosage: 2 MG, QD
  8. HUMALOG [Suspect]
     Active Substance: INSULIN LISPRO
     Indication: DIABETES MELLITUS
     Dosage: UNK UNK, PRN
     Route: 058
     Dates: start: 1994
  9. NEURONTIN [Concomitant]
     Active Substance: GABAPENTIN
     Dosage: 1 DF, BID
  10. INNER HEALTH PLUS [Concomitant]
  11. HIPREX [Concomitant]
     Active Substance: METHENAMINE HIPPURATE
     Dosage: UNK, BID
  12. PRADAXA [Concomitant]
     Active Substance: DABIGATRAN ETEXILATE MESYLATE
     Dosage: 110 MG, BID
  13. OSTELIN VITAMIN D [Concomitant]
     Active Substance: CHOLECALCIFEROL
  14. METHOTREXATE [Concomitant]
     Active Substance: METHOTREXATE
     Dosage: 10 MG, WEEKLY (1/W)
  15. ATORVASTATIN [Concomitant]
     Active Substance: ATORVASTATIN
     Dosage: 40 MG, QD

REACTIONS (14)
  - Lower respiratory tract infection [Unknown]
  - Urinary tract infection [Unknown]
  - Heart rate irregular [Recovered/Resolved]
  - Atrial flutter [Unknown]
  - Fatigue [Unknown]
  - Cardiac arrest [Recovered/Resolved]
  - Diabetes mellitus inadequate control [Unknown]
  - Tongue injury [Recovered/Resolved]
  - Hypertension [Unknown]
  - Malaise [Unknown]
  - Chills [Unknown]
  - Ventricular tachycardia [Recovered/Resolved]
  - Bundle branch block right [Unknown]
  - Electrocardiogram QT prolonged [Recovered/Resolved]

NARRATIVE: CASE EVENT DATE: 20140811
